FAERS Safety Report 5851319-9 (Version None)
Quarter: 2008Q3

REPORT INFORMATION
  Report Type: 
  Country: None (occurrence: None)
  Receive Date: 20080820
  Receipt Date: 20080811
  Transmission Date: 20090109
  Serious: Yes (Other)
  Sender: FDA-Public Use
  Company Number: DE-AVENTIS-200812172DE

PATIENT
  Age: 59 Year
  Sex: Female

DRUGS (3)
  1. ARAVA [Suspect]
     Dosage: DOSE: NOT REPORTED
     Route: 048
     Dates: end: 20080101
  2. BISOPROLOL PLUS [Concomitant]
  3. DICLOFENAC [Concomitant]

REACTIONS (1)
  - APHASIA [None]
